FAERS Safety Report 7832395-0 (Version None)
Quarter: 2011Q4

REPORT INFORMATION
  Report Type: 
  Country: None (occurrence: None)
  Receive Date: 20111022
  Receipt Date: 20111007
  Transmission Date: 20120403
  Serious: Yes (Hospitalization)
  Sender: FDA-Public Use
  Company Number: US-BAYER-2010-009342

PATIENT
  Age: 41 Year
  Sex: Female
  Weight: 72.562 kg

DRUGS (9)
  1. YASMIN [Suspect]
     Indication: ACNE
     Dosage: UNK
     Dates: start: 20070501, end: 20070701
  2. YASMIN [Suspect]
     Indication: HORMONE LEVEL ABNORMAL
  3. MINOCYCLINE HCL [Concomitant]
     Dosage: 100 MG, UNK
     Route: 048
     Dates: start: 20070503
  4. TEMAZEPAM [Concomitant]
     Dosage: 15 MG, UNK
     Route: 048
     Dates: start: 20070630
  5. DIFFERIN [Concomitant]
     Dosage: UNK
     Dates: start: 20070503
  6. PHENTERMINE [Concomitant]
     Indication: WEIGHT CONTROL
     Dosage: 37.5 MG, UNK
     Route: 048
     Dates: start: 20070501, end: 20070701
  7. YASMIN [Suspect]
     Indication: PREMENSTRUAL SYNDROME
     Dosage: UNK
     Dates: start: 20050601, end: 20051001
  8. ALPRAZOLAM [Concomitant]
     Dosage: 1 MG, UNK
     Route: 048
     Dates: start: 20070630
  9. BENICAR HCT [Concomitant]
     Indication: HYPERTENSION
     Dosage: UNK
     Route: 048
     Dates: start: 20070531

REACTIONS (13)
  - PAIN [None]
  - PALLOR [None]
  - FEAR [None]
  - EMOTIONAL DISTRESS [None]
  - BACK PAIN [None]
  - INJURY [None]
  - ASTHENIA [None]
  - PLEURISY [None]
  - DYSPNOEA [None]
  - PULMONARY EMBOLISM [None]
  - CYANOSIS [None]
  - CHEST PAIN [None]
  - MUSCULOSKELETAL PAIN [None]
